FAERS Safety Report 8033372-X (Version None)
Quarter: 2012Q1

REPORT INFORMATION
  Report Type: 
  Country: None (occurrence: None)
  Receive Date: 20120110
  Receipt Date: 20120104
  Transmission Date: 20120608
  Serious: Yes (Other)
  Sender: FDA-Public Use
  Company Number: PHHY2012CA001278

PATIENT

DRUGS (5)
  1. BETA BLOCKING AGENTS [Concomitant]
  2. ALISKIREN [Suspect]
     Dosage: 300 MG, UNK
  3. DIURETICS [Concomitant]
  4. ANGIOTENSIN RECEPTOR BLOCKERS [Concomitant]
  5. CALCIUM CHANNEL BLOCKERS [Concomitant]

REACTIONS (5)
  - TYPE 2 DIABETES MELLITUS [None]
  - URINE ALBUMIN/CREATININE RATIO INCREASED [None]
  - CARDIAC FAILURE CONGESTIVE [None]
  - OBESITY [None]
  - CORONARY ARTERY DISEASE [None]
